FAERS Safety Report 5052294-X (Version None)
Quarter: 2006Q3

REPORT INFORMATION
  Report Type: 
  Country: None (occurrence: None)
  Receive Date: 20060717
  Receipt Date: 20060705
  Transmission Date: 20061208
  Serious: Yes (Hospitalization)
  Sender: FDA-Public Use
  Company Number: US-ABBOTT-06P-163-0338023-00

PATIENT
  Age: 36 Year
  Sex: Male

DRUGS (3)
  1. DEPAKOTE [Suspect]
     Indication: SUICIDE ATTEMPT
     Dates: start: 20060611, end: 20060611
  2. OLANZAPINE [Suspect]
     Indication: SUICIDE ATTEMPT
     Dates: start: 20060611, end: 20060611
  3. CLONAZEPAM [Suspect]
     Indication: SUICIDE ATTEMPT
     Dates: start: 20060611, end: 20060611

REACTIONS (3)
  - COMA [None]
  - OVERDOSE [None]
  - SUICIDE ATTEMPT [None]
